FAERS Safety Report 5695712-6 (Version None)
Quarter: 2008Q2

REPORT INFORMATION
  Report Type: 
  Country: None (occurrence: None)
  Receive Date: 20080403
  Receipt Date: 20080313
  Transmission Date: 20081010
  Serious: Yes (Other)
  Sender: FDA-Public Use
  Company Number: 2008US000743

PATIENT
  Age: 4 Year
  Sex: Male

DRUGS (2)
  1. PROTOPIC [Suspect]
     Indication: DRUG USE FOR UNKNOWN INDICATION
  2. ELIDEL [Suspect]
     Indication: DRUG USE FOR UNKNOWN INDICATION

REACTIONS (1)
  - MALIGNANT MELANOMA [None]
